FAERS Safety Report 17811236 (Version 1)
Quarter: 2020Q2

REPORT INFORMATION
  Report Type: Spontaneous
  Country: US (occurrence: US)
  Receive Date: 20200520
  Receipt Date: 20200520
  Transmission Date: 20200714
  Serious: Yes (Hospitalization)
  Sender: FDA-Public Use
  Company Number: None

PATIENT
  Sex: Female

DRUGS (1)
  1. CAPECITABINE. [Suspect]
     Active Substance: CAPECITABINE
     Indication: BREAST CANCER
     Dosage: ?          OTHER FREQUENCY:3 QAM/ 4 QPM;?
     Route: 048
     Dates: start: 20200506

REACTIONS (6)
  - Pneumonia [None]
  - Feeling abnormal [None]
  - White blood cell count decreased [None]
  - Red blood cell count decreased [None]
  - Eye irritation [None]
  - Skin discolouration [None]
